FAERS Safety Report 22047124 (Version 1)
Quarter: 2023Q1

REPORT INFORMATION
  Report Type: Spontaneous
  Country: US (occurrence: None)
  Receive Date: 20230301
  Receipt Date: 20230301
  Transmission Date: 20230418
  Serious: No
  Sender: FDA-Public Use
  Company Number: 2023A028357

PATIENT
  Age: 48 Year
  Sex: Female
  Weight: 81.2 kg

DRUGS (2)
  1. TEZSPIRE [Suspect]
     Active Substance: TEZEPELUMAB-EKKO
     Route: 058
  2. DUPIXENT [Suspect]
     Active Substance: DUPILUMAB
     Dosage: 300 MG/ML

REACTIONS (3)
  - Chest discomfort [Unknown]
  - Injection site bruising [Unknown]
  - Drug ineffective [Unknown]
